FAERS Safety Report 8450439-2 (Version None)
Quarter: 2012Q2

REPORT INFORMATION
  Report Type: 
  Country: None (occurrence: None)
  Receive Date: 20120620
  Receipt Date: 20120611
  Transmission Date: 20120825
  Serious: Yes (Hospitalization)
  Sender: FDA-Public Use
  Company Number: JP-ASTELLAS-2012JP005407

PATIENT
  Sex: Male

DRUGS (1)
  1. PROGRAF [Suspect]
     Indication: COLITIS ULCERATIVE
     Dosage: 3 MG, UNKNOWN/D
     Route: 048
     Dates: start: 20120601

REACTIONS (1)
  - RENAL DISORDER [None]
